FAERS Safety Report 17367881 (Version 3)
Quarter: 2020Q1

REPORT INFORMATION
  Report Type: Spontaneous
  Country: US (occurrence: US)
  Receive Date: 20200204
  Receipt Date: 20200227
  Transmission Date: 20200409
  Serious: No
  Sender: FDA-Public Use
  Company Number: US-PFIZER INC-2020031973

PATIENT
  Age: 5 Year
  Sex: Female

DRUGS (3)
  1. NIVESTYM [Suspect]
     Active Substance: FILGRASTIM-AAFI
     Indication: NEUTROPENIA
     Dosage: 0.28 ML, 2X/WEEK
     Dates: start: 2019
  2. NIVESTYM [Suspect]
     Active Substance: FILGRASTIM-AAFI
     Indication: AUTOIMMUNE NEUTROPENIA
     Dosage: UNK, (THREE TIMES WEEKLY)
     Dates: start: 2019
  3. NIVESTYM [Suspect]
     Active Substance: FILGRASTIM-AAFI
     Dosage: 85.5 UG, UNK

REACTIONS (1)
  - Growth accelerated [Unknown]
